FAERS Safety Report 5576575-6 (Version None)
Quarter: 2007Q4

REPORT INFORMATION
  Report Type: 
  Country: None (occurrence: None)
  Receive Date: 20071228
  Receipt Date: 20071019
  Transmission Date: 20080405
  Serious: No
  Sender: FDA-Public Use
  Company Number: A0688729A

PATIENT
  Age: 9 Year
  Sex: Female

DRUGS (2)
  1. FLOVENT [Suspect]
     Indication: ASTHMA
     Dosage: 110MCG TWICE PER DAY
     Route: 055
     Dates: start: 20060901, end: 20061101
  2. XOPENEX [Concomitant]

REACTIONS (1)
  - VISUAL DISTURBANCE [None]
